FAERS Safety Report 23074633 (Version 1)
Quarter: 2023Q4

REPORT INFORMATION
  Report Type: Spontaneous
  Country: RS (occurrence: RS)
  Receive Date: 20231017
  Receipt Date: 20231017
  Transmission Date: 20240109
  Serious: Yes (Hospitalization)
  Sender: FDA-Public Use
  Company Number: RS-009507513-2310SRB003446

PATIENT
  Age: 73 Year
  Sex: Female

DRUGS (2)
  1. RECARBRIO [Suspect]
     Active Substance: CILASTATIN\IMIPENEM ANHYDROUS\RELEBACTAM ANHYDROUS
     Indication: Urinary tract infection
     Dosage: 1.25G (500MG+500MG+250MG) EVERY 6 HOURS
     Dates: start: 20230202, end: 20230209
  2. RECARBRIO [Suspect]
     Active Substance: CILASTATIN\IMIPENEM ANHYDROUS\RELEBACTAM ANHYDROUS
     Indication: Nosocomial infection

REACTIONS (3)
  - Lung infiltration [Unknown]
  - C-reactive protein increased [Unknown]
  - Procalcitonin increased [Unknown]

NARRATIVE: CASE EVENT DATE: 20230219
